FAERS Safety Report 6861958-4 (Version None)
Quarter: 2010Q3

REPORT INFORMATION
  Report Type: 
  Country: None (occurrence: None)
  Receive Date: 20100720
  Receipt Date: 20100720
  Transmission Date: 20110219
  Serious: No
  Sender: FDA-Public Use
  Company Number: None

PATIENT
  Sex: Female

DRUGS (2)
  1. BUPROPION HCL [Suspect]
     Indication: DEPRESSION
     Dosage: 1 G
     Dates: start: 20090601, end: 20100401
  2. KLONOPIN [Concomitant]

REACTIONS (3)
  - FEELING JITTERY [None]
  - HEADACHE [None]
  - PRODUCT SUBSTITUTION ISSUE [None]
